FAERS Safety Report 8151317-9 (Version None)
Quarter: 2012Q1

REPORT INFORMATION
  Report Type: 
  Country: None (occurrence: None)
  Receive Date: 20120220
  Receipt Date: 20120216
  Transmission Date: 20120608
  Serious: Yes (Death, Life-Threatening, Hospitalization, Other)
  Sender: FDA-Public Use
  Company Number: BR-ASTRAZENECA-2011SE05297

PATIENT
  Age: 741 Month
  Sex: Female
  Weight: 62 kg

DRUGS (5)
  1. ARIMIDEX [Suspect]
     Indication: METASTASES TO BONE
     Route: 048
     Dates: start: 20100101
  2. BROMAZEPAM [Concomitant]
     Indication: RESTLESSNESS
     Route: 048
  3. BROMAZEPAM [Concomitant]
     Indication: INSOMNIA
     Route: 048
  4. ANTIHYPERTENSIVE [Concomitant]
     Indication: HYPERTENSION
  5. TAMOXIFEN CITRATE [Suspect]
     Indication: BREAST CANCER
     Route: 048
     Dates: start: 19980101, end: 20030101

REACTIONS (5)
  - DEATH [None]
  - COAGULOPATHY [None]
  - HEPATIC ENCEPHALOPATHY [None]
  - HEPATIC FAILURE [None]
  - METASTASES TO BONE [None]
